FAERS Safety Report 6391073-8 (Version None)
Quarter: 2009Q4

REPORT INFORMATION
  Report Type: 
  Country: None (occurrence: None)
  Receive Date: 20091006
  Receipt Date: 20091006
  Transmission Date: 20100525
  Serious: Yes (Other)
  Sender: FDA-Public Use
  Company Number: None

PATIENT
  Sex: Female
  Weight: 57.1532 kg

DRUGS (3)
  1. ADDERALL 30 [Suspect]
     Indication: AMNESIA
     Dosage: 3 TABLETS 4X Q DAY PO
     Route: 048
     Dates: start: 20090601, end: 20091005
  2. ADDERALL 30 [Suspect]
     Indication: DISTRACTIBILITY
     Dosage: 3 TABLETS 4X Q DAY PO
     Route: 048
     Dates: start: 20090601, end: 20091005
  3. ADDERALL 30 [Suspect]
     Indication: TRAUMATIC BRAIN INJURY
     Dosage: 3 TABLETS 4X Q DAY PO
     Route: 048
     Dates: start: 20090601, end: 20091005

REACTIONS (3)
  - ACTIVITIES OF DAILY LIVING IMPAIRED [None]
  - DRUG EFFECT DECREASED [None]
  - PRODUCT FORMULATION ISSUE [None]
